FAERS Safety Report 7525012-0 (Version None)
Quarter: 2011Q2

REPORT INFORMATION
  Report Type: 
  Country: None (occurrence: None)
  Receive Date: 20110526
  Receipt Date: 20110524
  Transmission Date: 20111010
  Serious: Yes (Hospitalization, Other)
  Sender: FDA-Public Use
  Company Number: 2011MA005892

PATIENT
  Age: 27 Year
  Sex: Female

DRUGS (1)
  1. FEVERALL [Suspect]

REACTIONS (11)
  - BRAIN OEDEMA [None]
  - BLOOD SODIUM INCREASED [None]
  - HEPATIC FAILURE [None]
  - INTRACRANIAL PRESSURE INCREASED [None]
  - AMMONIA INCREASED [None]
  - LETHARGY [None]
  - OVERDOSE [None]
  - TOXICITY TO VARIOUS AGENTS [None]
  - COAGULOPATHY [None]
  - ENCEPHALOPATHY [None]
  - HEART RATE INCREASED [None]
